FAERS Safety Report 12310166 (Version 2)
Quarter: 2016Q2

REPORT INFORMATION
  Report Type: Spontaneous
  Country: US (occurrence: US)
  Receive Date: 20160427
  Receipt Date: 20160615
  Transmission Date: 20160815
  Serious: Yes (Other)
  Sender: FDA-Public Use
  Company Number: US-PFIZER INC-2016222931

PATIENT
  Age: 73 Year
  Sex: Female
  Weight: 58.96 kg

DRUGS (8)
  1. LYRICA [Concomitant]
     Active Substance: PREGABALIN
     Indication: NEUROPATHY PERIPHERAL
     Dosage: 50 MG, UNK
  2. METAXALONE. [Suspect]
     Active Substance: METAXALONE
     Indication: MUSCLE SPASMS
     Dosage: 800 MG, 4X/DAY
     Route: 048
     Dates: start: 2011, end: 201604
  3. CARBIDOPA W/LEVODOPA [Concomitant]
     Active Substance: CARBIDOPA\LEVODOPA
     Indication: PARKINSON^S DISEASE
     Dosage: (CARBIDOPA-25MG/LEVODOPA-100 MG)
  4. MIRAPEX [Concomitant]
     Active Substance: PRAMIPEXOLE DIHYDROCHLORIDE
     Indication: PARKINSON^S DISEASE
     Dosage: 1.5 MG, UNK
  5. TRAZODONE [Concomitant]
     Active Substance: TRAZODONE HYDROCHLORIDE
     Indication: INSOMNIA
     Dosage: UNK, AS NEEDED
     Dates: start: 2015
  6. METAXALONE. [Suspect]
     Active Substance: METAXALONE
     Indication: PARKINSON^S DISEASE
  7. ACYCLOVIR. [Concomitant]
     Active Substance: ACYCLOVIR
     Indication: VIRAL INFECTION
     Dosage: 400 MG, UNK
     Dates: start: 2015
  8. ACETAMINOPHEN W/HYDROCODONE [Concomitant]
     Active Substance: ACETAMINOPHEN\HYDROCODONE
     Indication: PAIN
     Dosage: UNK (HYDROCODONE-10MG/ACETAMINOPHEN-325 MG)

REACTIONS (10)
  - Foot deformity [Not Recovered/Not Resolved]
  - Haematoma [Unknown]
  - Drug dose omission [Unknown]
  - Back pain [Not Recovered/Not Resolved]
  - Plasma cell myeloma [Unknown]
  - Fracture [Unknown]
  - Middle insomnia [Unknown]
  - Fall [Unknown]
  - Bone cancer [Unknown]
  - Arthropod bite [Unknown]

NARRATIVE: CASE EVENT DATE: 2015
